FAERS Safety Report 9659257 (Version 2)
Quarter: 2013Q4

REPORT INFORMATION
  Report Type: Report from Study
  Country: US (occurrence: US)
  Receive Date: 20131031
  Receipt Date: 20131108
  Transmission Date: 20140711
  Serious: Yes (Hospitalization)
  Sender: FDA-Public Use
  Company Number: US-BRISTOL-MYERS SQUIBB COMPANY-19714534

PATIENT
  Age: 44 Year
  Sex: 0
  Weight: 109 kg

DRUGS (5)
  1. ARIPIPRAZOLE IM DEPOT [Suspect]
     Indication: SCHIZOPHRENIA
     Dosage: LAST DOSE ON 01OCT13
     Route: 030
     Dates: start: 20130903, end: 20131001
  2. INVEGA [Concomitant]
     Dosage: 16SEP2013
     Dates: start: 2007
  3. DOCUSATE [Concomitant]
     Dates: start: 20130912
  4. SHARK LIVER OIL [Concomitant]
     Dates: start: 20130915
  5. PREPARATION H [Concomitant]
     Dates: start: 20130915

REACTIONS (1)
  - Schizophrenia [Recovered/Resolved]
